FAERS Safety Report 8333561-0 (Version None)
Quarter: 2012Q2

REPORT INFORMATION
  Report Type: 
  Country: None (occurrence: None)
  Receive Date: 20120503
  Receipt Date: 20120423
  Transmission Date: 20120825
  Serious: Yes (Other)
  Sender: FDA-Public Use
  Company Number: PHHY2012JP020423

PATIENT
  Age: 56 Year
  Sex: Female

DRUGS (11)
  1. VINCRISTINE [Concomitant]
     Indication: MULTIPLE MYELOMA
  2. NEORAL [Suspect]
     Indication: BONE MARROW TRANSPLANT
  3. FLUDARABINE PHOSPHATE [Concomitant]
  4. DOXORUBICIN HCL [Concomitant]
     Indication: MULTIPLE MYELOMA
  5. METHOTREXATE [Concomitant]
     Indication: PROPHYLAXIS AGAINST GRAFT VERSUS HOST DISEASE
  6. MELPHALAN HYDROCHLORIDE [Concomitant]
  7. SANDIMMUNE [Suspect]
     Route: 041
  8. RADIATION THERAPY [Concomitant]
  9. ADRIAMYCIN PFS [Concomitant]
     Indication: MULTIPLE MYELOMA
  10. DEXAMETHASONE [Concomitant]
     Indication: MULTIPLE MYELOMA
  11. BORTEZOMIB [Concomitant]
     Indication: MULTIPLE MYELOMA

REACTIONS (3)
  - ACUTE GRAFT VERSUS HOST DISEASE [None]
  - THROMBOTIC MICROANGIOPATHY [None]
  - AUTOIMMUNE HEPATITIS [None]
